FAERS Safety Report 10724641 (Version 1)
Quarter: 2015Q1

REPORT INFORMATION
  Report Type: Spontaneous
  Country: BE (occurrence: BE)
  Receive Date: 20150120
  Receipt Date: 20150120
  Transmission Date: 20150721
  Serious: Yes (Hospitalization)
  Sender: FDA-Public Use
  Company Number: BE-JNJFOC-20150101818

PATIENT
  Age: 30 Year
  Sex: Female
  Weight: 58 kg

DRUGS (9)
  1. XEPLION [Suspect]
     Active Substance: PALIPERIDONE PALMITATE
     Indication: SCHIZOPHRENIA, PARANOID TYPE
     Route: 030
     Dates: start: 20140325
  2. LEVOCETIRIZINE DIHYDROCHLORIDE. [Concomitant]
     Active Substance: LEVOCETIRIZINE DIHYDROCHLORIDE
     Indication: MULTIPLE ALLERGIES
     Dosage: 1 TABLET TAKEN AT 18:00 HOURS.
     Route: 048
     Dates: start: 20140319
  3. PANTOPRAZOLE [Concomitant]
     Active Substance: PANTOPRAZOLE SODIUM
     Indication: GASTRODUODENAL ULCER
     Route: 048
     Dates: start: 20140415
  4. PANTOPRAZOLE [Concomitant]
     Active Substance: PANTOPRAZOLE SODIUM
     Indication: GASTRODUODENAL ULCER
     Dosage: IN THE MORNING. TAKING SINCE 4 YEARS PRIOR TO ONSET OF ADVERSE EVENTS
     Route: 048
  5. XEPLION [Suspect]
     Active Substance: PALIPERIDONE PALMITATE
     Indication: SCHIZOPHRENIA, PARANOID TYPE
     Route: 030
     Dates: start: 20140225
  6. EFFORTIL [Concomitant]
     Active Substance: ETILEFRINE HYDROCHLORIDE
     Indication: HYPOTENSION
     Dosage: TOOK 5MG AT 08:HOURS AND 18:00 HOURS RESPECTIVELY.
     Route: 048
     Dates: start: 20140415
  7. XEPLION [Suspect]
     Active Substance: PALIPERIDONE PALMITATE
     Indication: SCHIZOPHRENIA, PARANOID TYPE
     Route: 030
     Dates: start: 20140218
  8. XEPLION [Suspect]
     Active Substance: PALIPERIDONE PALMITATE
     Indication: SCHIZOPHRENIA, PARANOID TYPE
     Route: 030
     Dates: start: 20140422
  9. XEPLION [Suspect]
     Active Substance: PALIPERIDONE PALMITATE
     Indication: SCHIZOPHRENIA, PARANOID TYPE
     Route: 030
     Dates: start: 20140522

REACTIONS (7)
  - Amenorrhoea [Unknown]
  - Oedema [Unknown]
  - Depression [Unknown]
  - Seborrhoeic dermatitis [Unknown]
  - Injection site pain [Unknown]
  - Withdrawal syndrome [Unknown]
  - Hyperprolactinaemia [Recovering/Resolving]

NARRATIVE: CASE EVENT DATE: 201403
